FAERS Safety Report 7310779-7 (Version None)
Quarter: 2011Q1

REPORT INFORMATION
  Report Type: 
  Country: None (occurrence: None)
  Receive Date: 20110224
  Receipt Date: 20110131
  Transmission Date: 20110831
  Serious: No
  Sender: FDA-Public Use
  Company Number: US-B.I. PHARMACEUTICALS,INC./RIDGEFIELD-2011-BP-03143BP

PATIENT
  Sex: Female

DRUGS (15)
  1. CARAFATE [Concomitant]
     Indication: IRRITABLE BOWEL SYNDROME
     Dosage: 2 MG
     Route: 048
  2. LEXAPRO [Concomitant]
     Indication: DEPRESSION
     Dosage: 20 MG
     Route: 048
  3. ATIVAN [Concomitant]
     Dosage: 1 MG
     Route: 048
  4. FLOCAINE [Concomitant]
     Dosage: 200 MG
     Route: 048
  5. ATACAND [Concomitant]
     Indication: HYPERTENSION
     Dosage: 12 MG
     Route: 048
  6. LEVSIN [Concomitant]
     Indication: ABDOMINAL PAIN UPPER
     Route: 048
  7. PREVACID [Concomitant]
     Indication: IRRITABLE BOWEL SYNDROME
     Dosage: 30 MG
     Route: 048
  8. BENTYL [Concomitant]
     Indication: IRRITABLE BOWEL SYNDROME
     Dosage: 40 MG
     Route: 048
  9. PRADAXA [Suspect]
     Indication: ATRIAL FIBRILLATION
     Dosage: 300 MG
     Route: 048
     Dates: start: 20110124
  10. IRON [Concomitant]
     Indication: ANAEMIA
     Dosage: 325 MG
     Route: 048
  11. BENEFIBER [Concomitant]
     Indication: IRRITABLE BOWEL SYNDROME
     Route: 048
  12. LUNESTA [Concomitant]
     Indication: INSOMNIA
     Dosage: 3 MG
     Route: 048
  13. LEVSIN [Concomitant]
     Indication: IRRITABLE BOWEL SYNDROME
  14. LORTAB [Concomitant]
     Indication: BACK PAIN
     Route: 048
  15. VITAMIN D [Concomitant]
     Route: 048

REACTIONS (4)
  - ABDOMINAL PAIN UPPER [None]
  - POLLAKIURIA [None]
  - FAECES DISCOLOURED [None]
  - HAEMATOCHEZIA [None]
